FAERS Safety Report 17518075 (Version 2)
Quarter: 2020Q2

REPORT INFORMATION
  Report Type: Spontaneous
  Country: US (occurrence: US)
  Receive Date: 20200309
  Receipt Date: 20200407
  Transmission Date: 20200713
  Serious: No
  Sender: FDA-Public Use
  Company Number: US-THERATECHNOLOGIES INC.-2020-THE-TES-000043

PATIENT
  Age: 55 Year
  Sex: Male

DRUGS (4)
  1. PREZCOBIX [Concomitant]
     Active Substance: COBICISTAT\DARUNAVIR ETHANOLATE
     Indication: PRODUCT USED FOR UNKNOWN INDICATION
     Dosage: UNK
  2. CRESTOR [Concomitant]
     Active Substance: ROSUVASTATIN CALCIUM
     Indication: PRODUCT USED FOR UNKNOWN INDICATION
     Dosage: UNK
  3. INTELENCE [Concomitant]
     Active Substance: ETRAVIRINE
     Indication: PRODUCT USED FOR UNKNOWN INDICATION
     Dosage: UNK
  4. EGRIFTA [Suspect]
     Active Substance: TESAMORELIN ACETATE
     Indication: PRODUCT USED FOR UNKNOWN INDICATION
     Dosage: UNK
     Dates: start: 2020

REACTIONS (7)
  - Hypoaesthesia [Unknown]
  - Arthralgia [Unknown]
  - Muscle spasms [Unknown]
  - Pain in extremity [Unknown]
  - Muscle spasms [Recovered/Resolved]
  - Peripheral swelling [Unknown]
  - Paraesthesia [Unknown]

NARRATIVE: CASE EVENT DATE: 202002
